FAERS Safety Report 8267364 (Version 7)
Quarter: 2013Q1

REPORT INFORMATION
  Report Type: Spontaneous
  Country: US (occurrence: US)
  Receive Date: 20111129
  Receipt Date: 20130311
  Transmission Date: 20140127
  Serious: Yes (Hospitalization, Other)
  Sender: FDA-Public Use
  Company Number: US-009507513-1111USA03483

PATIENT
  Sex: Female
  Weight: 66.22 kg

DRUGS (21)
  1. FOSAMAX [Suspect]
     Indication: OSTEOPENIA
     Dosage: 70 MG, QW
     Route: 048
     Dates: start: 200206, end: 200504
  2. FOSAMAX PLUS D [Suspect]
     Indication: OSTEOPENIA
     Dosage: 70MG/5600
     Route: 048
     Dates: start: 200504, end: 200911
  3. MK-9278 [Concomitant]
     Route: 048
     Dates: start: 1995, end: 2009
  4. CALCIUM (UNSPECIFIED) [Concomitant]
     Route: 048
     Dates: start: 1995, end: 2009
  5. STANDARD PROCESS LIGAPLEX II [Concomitant]
     Route: 048
     Dates: start: 1995, end: 2009
  6. HORSE CHESTNUT [Concomitant]
     Route: 048
     Dates: start: 19950101, end: 20090101
  7. ARTICHOKE [Concomitant]
     Route: 048
     Dates: start: 1995, end: 2009
  8. RED YEAST [Concomitant]
     Route: 048
     Dates: start: 1995, end: 2009
  9. MEGA [Concomitant]
     Route: 048
     Dates: start: 1995, end: 2009
  10. VITAMIN B COMPLEX [Concomitant]
     Route: 048
     Dates: start: 1995, end: 2009
  11. VITAMIN D (UNSPECIFIED) [Concomitant]
     Route: 048
     Dates: start: 1995
  12. FLAXSEED [Concomitant]
     Route: 048
     Dates: start: 1995, end: 2009
  13. ASCORBIC ACID (+) COLLAGEN [Concomitant]
     Route: 048
     Dates: start: 1995, end: 2009
  14. CALCIUM CITRATE [Concomitant]
     Route: 048
     Dates: start: 1995, end: 2009
  15. CHONDROITIN SULFATE SODIUM (+) GLUCOSAMINE SULFATE [Concomitant]
     Route: 048
     Dates: start: 1995, end: 2009
  16. THERAPY UNSPECIFIED [Concomitant]
     Route: 048
     Dates: start: 1995, end: 2009
  17. VALTREX [Concomitant]
     Indication: HERPES SIMPLEX
     Dosage: 500 MG, QD
     Dates: start: 2000
  18. TOPROL XL TABLETS [Concomitant]
     Indication: HYPERTENSION
     Dosage: 100 MG, QD
     Route: 048
     Dates: start: 2000
  19. DYAZIDE [Concomitant]
     Indication: HYPERTENSION
     Dosage: 1 TAB DAILY
     Route: 048
     Dates: start: 2000
  20. LIPITOR [Concomitant]
     Indication: BLOOD CHOLESTEROL INCREASED
     Route: 048
     Dates: start: 2000
  21. TRILIPIX [Concomitant]
     Indication: BLOOD CHOLESTEROL INCREASED
     Route: 048
     Dates: start: 2000

REACTIONS (39)
  - Femur fracture [Recovered/Resolved]
  - Fall [Unknown]
  - Fracture nonunion [Unknown]
  - Bone graft [Unknown]
  - Non-Hodgkin^s lymphoma [Unknown]
  - Open reduction of fracture [Unknown]
  - Angiopathy [Unknown]
  - Femur fracture [Unknown]
  - Reflux laryngitis [Unknown]
  - Osteopetrosis [Unknown]
  - Vitamin D deficiency [Unknown]
  - Cervical dysplasia [Unknown]
  - Ovarian cyst [Recovered/Resolved]
  - Uterine leiomyoma [Not Recovered/Not Resolved]
  - Rib fracture [Unknown]
  - Osteoarthritis [Unknown]
  - Intraductal papilloma of breast [Unknown]
  - Cervical dysplasia [Unknown]
  - Device failure [Unknown]
  - Bursitis [Unknown]
  - Restless legs syndrome [Not Recovered/Not Resolved]
  - Osteoarthritis [Unknown]
  - Bursitis [Unknown]
  - Pulmonary mass [Unknown]
  - Neuropathy peripheral [Unknown]
  - Osteoporosis [Unknown]
  - Breast fibrosis [Unknown]
  - Metaplasia [Unknown]
  - Device failure [Unknown]
  - Stem cell transplant [Unknown]
  - Bone marrow donation [Unknown]
  - Patellofemoral pain syndrome [Unknown]
  - Meniscus injury [Unknown]
  - Biopsy breast [Unknown]
  - Biopsy cervix [Unknown]
  - Constipation [Unknown]
  - Drug ineffective [Unknown]
  - Gastrooesophageal reflux disease [Unknown]
  - Arthralgia [Unknown]
